FAERS Safety Report 15497574 (Version 2)
Quarter: 2018Q4

REPORT INFORMATION
  Report Type: Spontaneous
  Country: GB (occurrence: GB)
  Receive Date: 20181015
  Receipt Date: 20181113
  Transmission Date: 20190205
  Serious: Yes (Life-Threatening, Hospitalization, Other)
  Sender: FDA-Public Use
  Company Number: GB-BRISTOL-MYERS SQUIBB COMPANY-BMS-2018-092294

PATIENT
  Age: 64 Year
  Sex: Male

DRUGS (5)
  1. PRAVASTATIN SODIUM. [Suspect]
     Active Substance: PRAVASTATIN SODIUM
     Indication: INTENTIONAL OVERDOSE
     Dosage: 840 MG, UNK
     Route: 048
  2. RANITIDINE. [Suspect]
     Active Substance: RANITIDINE
     Indication: INTENTIONAL OVERDOSE
     Dosage: 9 G, UNK
     Route: 048
  3. NIMODIPINE. [Suspect]
     Active Substance: NIMODIPINE
     Indication: INTENTIONAL OVERDOSE
     Dosage: 840 MG, UNK
     Route: 048
  4. RISPERIDONE. [Suspect]
     Active Substance: RISPERIDONE
     Indication: INTENTIONAL OVERDOSE
     Dosage: 88 MG, UNK
     Route: 048
  5. METFORMIN HYDROCHLORIDE. [Suspect]
     Active Substance: METFORMIN HYDROCHLORIDE
     Indication: INTENTIONAL OVERDOSE
     Dosage: 42 G, UNK
     Route: 048

REACTIONS (7)
  - Intentional overdose [Recovering/Resolving]
  - Lactic acidosis [Unknown]
  - Toxicity to various agents [Recovering/Resolving]
  - Brain injury [Recovering/Resolving]
  - Renal failure [Unknown]
  - Cardiogenic shock [Recovering/Resolving]
  - Polyneuropathy [Unknown]
